FAERS Safety Report 18940540 (Version 1)
Quarter: 2021Q1

REPORT INFORMATION
  Report Type: Report from Study
  Country: CA (occurrence: CA)
  Receive Date: 20210225
  Receipt Date: 20210225
  Transmission Date: 20210420
  Serious: Yes (Hospitalization, Other)
  Sender: FDA-Public Use
  Company Number: CA-JNJFOC-20210238057

PATIENT
  Age: 9 Year
  Sex: Male

DRUGS (2)
  1. REMICADE [Suspect]
     Active Substance: INFLIXIMAB
     Indication: INFLAMMATORY BOWEL DISEASE
  2. REMICADE [Suspect]
     Active Substance: INFLIXIMAB
     Indication: SHORT-BOWEL SYNDROME
     Route: 042

REACTIONS (4)
  - Urticaria [Recovered/Resolved with Sequelae]
  - Infusion related reaction [Unknown]
  - Throat irritation [Unknown]
  - Joint swelling [Recovering/Resolving]

NARRATIVE: CASE EVENT DATE: 20210219
